FAERS Safety Report 12520396 (Version 2)
Quarter: 2016Q3

REPORT INFORMATION
  Report Type: Spontaneous
  Country: US (occurrence: US)
  Receive Date: 20160701
  Receipt Date: 20160704
  Transmission Date: 20161109
  Serious: No
  Sender: FDA-Public Use
  Company Number: US-ASTRAZENECA-2016SE70745

PATIENT
  Sex: Female
  Weight: 65.8 kg

DRUGS (1)
  1. RHINOCORT ALLERGY [Suspect]
     Active Substance: BUDESONIDE
     Indication: MULTIPLE ALLERGIES
     Dosage: TWO SPRAYS IN EACH NOSTRIL DAILY
     Route: 045
     Dates: start: 20160603

REACTIONS (2)
  - Dysgeusia [Unknown]
  - Drug effect incomplete [Unknown]
